FAERS Safety Report 11316207 (Version 1)
Quarter: 2015Q3

REPORT INFORMATION
  Report Type: Spontaneous
  Country: IT (occurrence: IT)
  Receive Date: 20150728
  Receipt Date: 20150728
  Transmission Date: 20151125
  Serious: Yes (Other)
  Sender: FDA-Public Use
  Company Number: IT-ACTAVIS-2015-15429

PATIENT
  Age: 62 Year
  Sex: Male
  Weight: 61 kg

DRUGS (2)
  1. OXALIPLATIN (UNKNOWN) [Suspect]
     Active Substance: OXALIPLATIN
     Indication: OESOPHAGEAL ADENOCARCINOMA
     Dosage: 130 MG, CYCLICAL
     Route: 042
     Dates: start: 20141229, end: 20150601
  2. CAPECITABINE (UNKNOWN) [Suspect]
     Active Substance: CAPECITABINE
     Indication: OESOPHAGEAL ADENOCARCINOMA
     Dosage: 2500 MG, CYCLICAL
     Route: 048
     Dates: start: 20141229, end: 20150601

REACTIONS (3)
  - Neutropenia [Recovering/Resolving]
  - Paraesthesia [Recovering/Resolving]
  - Hyperglycaemia [Unknown]

NARRATIVE: CASE EVENT DATE: 20150119
